FAERS Safety Report 13247525 (Version 2)
Quarter: 2017Q1

REPORT INFORMATION
  Report Type: Spontaneous
  Country: US (occurrence: US)
  Receive Date: 20170217
  Receipt Date: 20170313
  Transmission Date: 20170428
  Serious: No
  Sender: FDA-Public Use
  Company Number: US-ELI_LILLY_AND_COMPANY-US201608002249

PATIENT
  Age: 53 Year
  Sex: Female

DRUGS (2)
  1. CYMBALTA [Suspect]
     Active Substance: DULOXETINE HYDROCHLORIDE
     Dosage: 120 MG, UNK
     Route: 048
  2. CYMBALTA [Suspect]
     Active Substance: DULOXETINE HYDROCHLORIDE
     Indication: PRODUCT USED FOR UNKNOWN INDICATION
     Dosage: UNK, UNKNOWN
     Route: 048

REACTIONS (14)
  - Photophobia [Unknown]
  - Nausea [Unknown]
  - Balance disorder [Unknown]
  - Sensory disturbance [Unknown]
  - Tinnitus [Unknown]
  - Headache [Unknown]
  - Dizziness [Unknown]
  - Dysphoria [Unknown]
  - Anxiety [Unknown]
  - Insomnia [Unknown]
  - Drug withdrawal syndrome [Unknown]
  - Fatigue [Unknown]
  - Paraesthesia [Unknown]
  - Vomiting [Unknown]

NARRATIVE: CASE EVENT DATE: 20130804
